FAERS Safety Report 24601527 (Version 2)
Quarter: 2025Q3

REPORT INFORMATION
  Report Type: Spontaneous
  Country: GB (occurrence: GB)
  Receive Date: 20241111
  Receipt Date: 20250809
  Transmission Date: 20251020
  Serious: Yes (Other)
  Sender: ALEXION PHARMACEUTICALS
  Company Number: None

PATIENT
  Age: 50 Year
  Sex: Male
  Weight: 64 kg

DRUGS (8)
  1. DAPAGLIFLOZIN [Suspect]
     Active Substance: DAPAGLIFLOZIN
     Indication: Chronic kidney disease
  2. ASPIRIN [Concomitant]
     Active Substance: ASPIRIN
     Indication: Adverse drug reaction
  3. ATORVASTATIN [Concomitant]
     Active Substance: ATORVASTATIN
     Indication: Adverse drug reaction
  4. RIVAROXABAN [Concomitant]
     Active Substance: RIVAROXABAN
     Indication: Adverse drug reaction
  5. CANDESARTAN [Concomitant]
     Active Substance: CANDESARTAN
     Indication: Adverse drug reaction
  6. ISOSORBIDE MONONITRATE [Concomitant]
     Active Substance: ISOSORBIDE MONONITRATE
     Indication: Coronary artery stenosis
  7. LANSOPRAZOLE [Concomitant]
     Active Substance: LANSOPRAZOLE
     Indication: Drug interaction
  8. EZETIMIBE [Concomitant]
     Active Substance: EZETIMIBE
     Indication: Stenosis

REACTIONS (1)
  - Phimosis [Not Recovered/Not Resolved]
